FAERS Safety Report 4320578-6 (Version None)
Quarter: 2004Q1

REPORT INFORMATION
  Report Type: 
  Country: None (occurrence: None)
  Receive Date: 20040317
  Receipt Date: 20040305
  Transmission Date: 20041129
  Serious: Yes (Other)
  Sender: FDA-Public Use
  Company Number: 2004010547

PATIENT
  Age: 4 Year
  Sex: Male
  Weight: 18.1439 kg

DRUGS (5)
  1. ZYRTEC [Suspect]
     Indication: HYPERSENSITIVITY
     Dosage: ORAL
     Route: 048
     Dates: start: 20020101
  2. ATARAX [Suspect]
     Indication: ANGIONEUROTIC OEDEMA
  3. RANITIDINE HYDROCHLORIDE [Suspect]
     Indication: ANGIONEUROTIC OEDEMA
     Dates: start: 20040201
  4. MONTELUKAST SODIUM (MONTELUKAST SODIUM) [Suspect]
     Indication: ANGIONEUROTIC OEDEMA
     Dates: start: 20040101, end: 20040101
  5. LEVETIRACETAM [Concomitant]

REACTIONS (4)
  - ANGIONEUROTIC OEDEMA [None]
  - DRUG INEFFECTIVE [None]
  - FLUSHING [None]
  - HYPERSENSITIVITY [None]
